FAERS Safety Report 16757264 (Version 2)
Quarter: 2019Q4

REPORT INFORMATION
  Report Type: Spontaneous
  Country: US (occurrence: US)
  Receive Date: 20190829
  Receipt Date: 20191002
  Transmission Date: 20200122
  Serious: No
  Sender: FDA-Public Use
  Company Number: US-ASTRAZENECA-2019SF10989

PATIENT
  Sex: Male
  Weight: 86.2 kg

DRUGS (3)
  1. TOUJEO [Concomitant]
     Active Substance: INSULIN GLARGINE
  2. BYDUREON BCISE [Suspect]
     Active Substance: EXENATIDE
     Indication: BLOOD GLUCOSE ABNORMAL
     Route: 058
     Dates: start: 20190724
  3. HUMALOG [Concomitant]
     Active Substance: INSULIN LISPRO
     Dates: start: 2016

REACTIONS (5)
  - Product use issue [Unknown]
  - Device malfunction [Unknown]
  - Injection site erythema [Not Recovered/Not Resolved]
  - Hypoacusis [Unknown]
  - Pain in extremity [Unknown]

NARRATIVE: CASE EVENT DATE: 20190730
